FAERS Safety Report 13738746 (Version 1)
Quarter: 2017Q3

REPORT INFORMATION
  Report Type: Report from Study
  Country: US (occurrence: US)
  Receive Date: 20170710
  Receipt Date: 20170710
  Transmission Date: 20171127
  Serious: No
  Sender: FDA-Public Use
  Company Number: US-SAOL THERAPEUTICS-2017SAO00535

PATIENT
  Age: 50 Year
  Sex: Female

DRUGS (12)
  1. COMPOUNDED BACLOFEN [Suspect]
     Active Substance: BACLOFEN
     Dosage: 60.05 ?G, \DAY
     Route: 037
     Dates: start: 20150528
  2. BUPIVACAINE. [Suspect]
     Active Substance: BUPIVACAINE
     Dosage: 15.512 MG, \DAY
     Route: 037
     Dates: start: 20150528
  3. BUPIVACAINE. [Suspect]
     Active Substance: BUPIVACAINE
     Dosage: 12.010 MG, \DAY
     Route: 037
     Dates: start: 20150528
  4. MORPHINE [Suspect]
     Active Substance: MORPHINE
     Dosage: .4003 MG, \DAY
     Route: 037
     Dates: start: 20150528
  5. MORPHINE [Suspect]
     Active Substance: MORPHINE
     Dosage: 0.5171 MG, \DAY
     Route: 037
     Dates: start: 20150528
  6. COMPOUNDED BACLOFEN [Suspect]
     Active Substance: BACLOFEN
     Dosage: 52.45 ?G, \DAY
     Route: 037
     Dates: start: 20150409, end: 20150528
  7. COMPOUNDED BACLOFEN [Suspect]
     Active Substance: BACLOFEN
     Dosage: 77.56 ?G, \DAY
     Route: 037
     Dates: start: 20150528
  8. COMPOUNDED BACLOFEN [Suspect]
     Active Substance: BACLOFEN
     Dosage: 69.79 ?G, \DAY
     Route: 037
     Dates: start: 20150409, end: 20150528
  9. BUPIVACAINE. [Suspect]
     Active Substance: BUPIVACAINE
     Dosage: 10.491 MG, \DAY
     Route: 037
     Dates: start: 20150409, end: 20150528
  10. BUPIVACAINE. [Suspect]
     Active Substance: BUPIVACAINE
     Dosage: 13.959 MG, \DAY
     Route: 037
     Dates: start: 20150409, end: 20150528
  11. MORPHINE [Suspect]
     Active Substance: MORPHINE
     Dosage: 0.3497 MG, \DAY
     Route: 037
     Dates: start: 20150409, end: 20150528
  12. MORPHINE [Suspect]
     Active Substance: MORPHINE
     Dosage: 0.4653 MG, \DAY
     Route: 037
     Dates: start: 20150409, end: 20150528

REACTIONS (1)
  - Implant site pain [Recovered/Resolved]

NARRATIVE: CASE EVENT DATE: 20150528
